FAERS Safety Report 16267282 (Version 1)
Quarter: 2019Q2

REPORT INFORMATION
  Report Type: Spontaneous
  Country: US (occurrence: US)
  Receive Date: 20190502
  Receipt Date: 20190502
  Transmission Date: 20190711
  Serious: No
  Sender: FDA-Public Use
  Company Number: US-AMGEN-USASL2019017873

PATIENT
  Age: 84 Year
  Sex: Female

DRUGS (5)
  1. REPATHA [Suspect]
     Active Substance: EVOLOCUMAB
     Indication: BLOOD CHOLESTEROL INCREASED
     Dosage: 420 MILLIGRAM, QMO
     Route: 065
     Dates: start: 2018
  2. ZETIA [Concomitant]
     Active Substance: EZETIMIBE
     Indication: LOW DENSITY LIPOPROTEIN INCREASED
  3. REPATHA [Suspect]
     Active Substance: EVOLOCUMAB
     Indication: LOW DENSITY LIPOPROTEIN ABNORMAL
     Dosage: UNK UNK, Q2WK
     Route: 065
     Dates: start: 2018, end: 2018
  4. ZETIA [Concomitant]
     Active Substance: EZETIMIBE
     Indication: LOW DENSITY LIPOPROTEIN ABNORMAL
     Dosage: UNK UNK, QD
     Dates: start: 201901
  5. REPATHA [Suspect]
     Active Substance: EVOLOCUMAB
     Dosage: 420 MILLIGRAM, QMO
     Route: 065

REACTIONS (3)
  - Wrong technique in product usage process [Unknown]
  - Drug ineffective [Unknown]
  - Device issue [Unknown]

NARRATIVE: CASE EVENT DATE: 2018
